FAERS Safety Report 26069207 (Version 2)
Quarter: 2025Q4

REPORT INFORMATION
  Report Type: Spontaneous
  Country: US (occurrence: US)
  Receive Date: 20251120
  Receipt Date: 20251215
  Transmission Date: 20260117
  Serious: No
  Sender: GALDERMA
  Company Number: US-GALDERMA-US2025023185

PATIENT

DRUGS (19)
  1. NEMLUVIO [Suspect]
     Active Substance: NEMOLIZUMAB-ILTO
     Indication: Product used for unknown indication
     Dosage: UNK
     Route: 058
  2. CLOBETASOL [Concomitant]
     Active Substance: CLOBETASOL
     Indication: Product used for unknown indication
     Dosage: 1 DOSAGE FORM, BID, APPLY BID TO THE AFFECTED AREAS X 2 WEEKS, TAKE X 1 WEEK OFF, REPEAT FOR MAINTEN
     Route: 061
     Dates: start: 20250402
  3. HYDROCORTISONE [Concomitant]
     Active Substance: HYDROCORTISONE
     Indication: Skin exfoliation
     Dosage: 1 DOSAGE FORM, BID, MIX WITH THE KETOCONAZOLE CREAM AND APPLY A THIN LAYER TOPICALLY TWICE DAY TO TH
     Route: 061
     Dates: start: 20241022
  4. HYDROCORTISONE [Concomitant]
     Active Substance: HYDROCORTISONE
     Indication: Skin irritation
  5. KETOCONAZOLE [Concomitant]
     Active Substance: KETOCONAZOLE
     Indication: Scab
     Dosage: 1 DOSAGE FORM, BID, APPLY A THIN LAYER TOPICALLY BID/PRN TO THE CRUSTED AREAS
     Route: 061
     Dates: start: 20241008
  6. MUPIROCIN [Concomitant]
     Active Substance: MUPIROCIN
     Indication: Peripheral swelling
     Dosage: 1 DOSAGE FORM, BID, APPLY A THIN LAYER TOPICALLY BID TO THE SORE ON THE RIGHT ARM
     Route: 061
     Dates: start: 20241022
  7. OPZELURA [Concomitant]
     Active Substance: RUXOLITINIB PHOSPHATE
     Indication: Product used for unknown indication
     Dosage: 1 DOSAGE FORM, BID, APPLY TO AFFECTED AREAS TWICE DAILY FOR 8 WEEKS
     Route: 061
     Dates: start: 20250129
  8. ASPIRIN [Concomitant]
     Active Substance: ASPIRIN
     Indication: Product used for unknown indication
     Dosage: 1 DOSAGE FORM
     Route: 048
  9. B12 [Concomitant]
     Indication: Product used for unknown indication
     Dosage: UNK, 5000-100 MCG
     Route: 060
  10. CLONAZEPAM [Concomitant]
     Active Substance: CLONAZEPAM
     Indication: Product used for unknown indication
     Dosage: UNK
     Route: 048
  11. CLOPIDOGREL [Concomitant]
     Active Substance: CLOPIDOGREL BISULFATE
     Indication: Product used for unknown indication
     Dosage: UNK
     Route: 048
  12. DOXEPIN [Concomitant]
     Active Substance: DOXEPIN
     Indication: Product used for unknown indication
     Dosage: UNK, ONE CAP BEFORE BEDTIME (QHS)
     Route: 048
     Dates: start: 20241022
  13. FLUCONAZOLE [Concomitant]
     Active Substance: FLUCONAZOLE
     Indication: Product used for unknown indication
     Dosage: 1 DOSAGE FORM, QWK, FOR 12 MONTHS
     Route: 048
     Dates: start: 20240507
  14. ITRACONAZOLE [Concomitant]
     Active Substance: ITRACONAZOLE
     Indication: Product used for unknown indication
     Dosage: UNK, 2 CAPSULES BY MOUTH FOR 1 WEEK THEN 3 WEEKS OFF AND REPEAT NEXT MONTH
     Route: 048
     Dates: start: 20240828
  15. LEVOTHYROXINE [Concomitant]
     Active Substance: LEVOTHYROXINE
     Indication: Product used for unknown indication
     Dosage: UNK
     Route: 048
  16. OLMESARTAN [Concomitant]
     Active Substance: OLMESARTAN
     Indication: Product used for unknown indication
     Dosage: UNK
     Route: 048
  17. PLAVIX [Concomitant]
     Active Substance: CLOPIDOGREL BISULFATE
     Indication: Product used for unknown indication
     Dosage: UNK
     Route: 048
  18. TERBINAFINE HYDROCHLORIDE [Concomitant]
     Active Substance: TERBINAFINE HYDROCHLORIDE
     Indication: Product used for unknown indication
     Dosage: UNK
     Route: 048
  19. TYLENOL [Concomitant]
     Active Substance: ACETAMINOPHEN
     Indication: Product used for unknown indication
     Dosage: UNK
     Route: 048

REACTIONS (2)
  - Urinary incontinence [Not Recovered/Not Resolved]
  - Renal pain [Not Recovered/Not Resolved]

NARRATIVE: CASE EVENT DATE: 20250110
